FAERS Safety Report 6636948-7 (Version None)
Quarter: 2010Q1

REPORT INFORMATION
  Report Type: 
  Country: None (occurrence: None)
  Receive Date: 20100316
  Receipt Date: 20100201
  Transmission Date: 20100710
  Serious: Yes (Hospitalization)
  Sender: FDA-Public Use
  Company Number: GB-CEPHALON-2010001489

PATIENT
  Sex: Female
  Weight: 2 kg

DRUGS (5)
  1. PROVIGIL [Suspect]
     Route: 064
     Dates: start: 20090101, end: 20091001
  2. CYCLIZINE [Concomitant]
     Dates: start: 20091228
  3. DICLOFENAC [Concomitant]
     Route: 054
     Dates: start: 20091228
  4. CO-AMOXICLAV [Concomitant]
     Dates: start: 20091228
  5. DIAMORPHINE [Concomitant]
     Dates: start: 20091228

REACTIONS (1)
  - PREMATURE BABY [None]
